FAERS Safety Report 23527761 (Version 3)
Quarter: 2024Q1

REPORT INFORMATION
  Report Type: Spontaneous
  Country: ES (occurrence: ES)
  Receive Date: 20240215
  Receipt Date: 20240229
  Transmission Date: 20240410
  Serious: Yes (Hospitalization)
  Sender: FDA-Public Use
  Company Number: ES-Hill Dermaceuticals, Inc.-2153262

PATIENT
  Age: 83 Year
  Sex: Female

DRUGS (2)
  1. TOLAK [Suspect]
     Active Substance: FLUOROURACIL
     Route: 061
     Dates: start: 20231218, end: 20240114
  2. AZACITIDINE [Concomitant]
     Active Substance: AZACITIDINE
     Dates: start: 20240108, end: 20240112

REACTIONS (5)
  - Skin lesion [Recovered/Resolved]
  - Erythema [Recovering/Resolving]
  - Hypotension [Recovered/Resolved]
  - Pyrexia [Recovered/Resolved]
  - Diarrhoea [Recovered/Resolved]

NARRATIVE: CASE EVENT DATE: 20231225
